FAERS Safety Report 4705850-X (Version None)
Quarter: 2005Q2

REPORT INFORMATION
  Report Type: 
  Country: None (occurrence: None)
  Receive Date: 20050629
  Receipt Date: 20050518
  Transmission Date: 20051028
  Serious: No
  Sender: FDA-Public Use
  Company Number: 05P-163-0294496-00

PATIENT
  Age: 57 Year
  Sex: Female
  Weight: 47.1741 kg

DRUGS (9)
  1. HUMIRA [Suspect]
     Indication: RHEUMATOID ARTHRITIS
     Dosage: 40 MG, 1 IN 2 WK, SUBCUTANEOUS
     Route: 058
     Dates: start: 20040801, end: 20050225
  2. PREDNISONE TAB [Concomitant]
  3. METHOTREXATE SODIUM [Concomitant]
  4. TRAMADOL HCL [Concomitant]
  5. LEFLUNOMIDE [Concomitant]
  6. NABUMETONE [Concomitant]
  7. FOLIC ACID [Concomitant]
  8. ALENDRONATE SODIUM [Concomitant]
  9. DIOVAN [Concomitant]

REACTIONS (3)
  - COUGH [None]
  - LOWER RESPIRATORY TRACT INFECTION [None]
  - PULMONARY TUBERCULOSIS [None]
